FAERS Safety Report 4376404-2 (Version None)
Quarter: 2004Q2

REPORT INFORMATION
  Report Type: 
  Country: None (occurrence: None)
  Receive Date: 20040608
  Receipt Date: 20040525
  Transmission Date: 20050107
  Serious: Yes (Hospitalization)
  Sender: FDA-Public Use
  Company Number: 2004-BP-04123BP

PATIENT

DRUGS (2)
  1. SPIRIVA [Suspect]
     Dosage: (18 MCG), IH
     Route: 055
  2. PREDNISONE TAB [Concomitant]

REACTIONS (4)
  - INSOMNIA [None]
  - IRRITABILITY [None]
  - MYOCARDIAL INFARCTION [None]
  - TREMOR [None]
